FAERS Safety Report 12488680 (Version 1)
Quarter: 2016Q2

REPORT INFORMATION
  Report Type: Spontaneous
  Country: US (occurrence: US)
  Receive Date: 20160622
  Receipt Date: 20160622
  Transmission Date: 20160815
  Serious: Yes (Other)
  Sender: FDA-Public Use
  Company Number: US-AMGEN-USASP2016077573

PATIENT
  Sex: Female

DRUGS (1)
  1. ENBREL [Suspect]
     Active Substance: ETANERCEPT
     Indication: PSORIASIS
     Dosage: 0.8MG/KG QWK FOR UP TO 264 WEEKS
     Route: 058

REACTIONS (18)
  - Intestinal obstruction [Unknown]
  - Headache [Unknown]
  - Acne [Unknown]
  - Skin papilloma [Unknown]
  - Sinusitis [Unknown]
  - Osteonecrosis [Unknown]
  - Cough [Unknown]
  - Infectious mononucleosis [Unknown]
  - Upper respiratory tract infection [Unknown]
  - Cellulitis [Unknown]
  - Nasopharyngitis [Unknown]
  - Oropharyngeal pain [Unknown]
  - Anxiety [Unknown]
  - Thyroid cyst [Unknown]
  - Influenza [Unknown]
  - Pharyngitis streptococcal [Unknown]
  - Off label use [Unknown]
  - Selective abortion [Unknown]
